FAERS Safety Report 9898964 (Version 1)
Quarter: 2014Q1

REPORT INFORMATION
  Report Type: Spontaneous
  Country: US (occurrence: US)
  Receive Date: 20140214
  Receipt Date: 20140214
  Transmission Date: 20141002
  Serious: Yes (Hospitalization)
  Sender: FDA-Public Use
  Company Number: US-GLAXOSMITHKLINE-A1060899A

PATIENT
  Age: 44 Year
  Sex: Male

DRUGS (1)
  1. VOTRIENT [Suspect]
     Indication: MALIGNANT NEOPLASM OF RENAL PELVIS
     Dosage: 200MG UNKNOWN

REACTIONS (3)
  - Hepatic failure [Unknown]
  - Renal failure [Unknown]
  - Pain [Unknown]
